FAERS Safety Report 25880810 (Version 1)
Quarter: 2025Q4

REPORT INFORMATION
  Report Type: Other
  Country: TR (occurrence: TR)
  Receive Date: 20251004
  Receipt Date: 20251004
  Transmission Date: 20260118
  Serious: Yes (Hospitalization, Other)
  Sender: ANI
  Company Number: TR-ANIPHARMA-030821

PATIENT
  Age: 11 Year
  Sex: Female

DRUGS (3)
  1. VANCOMYCIN [Suspect]
     Active Substance: VANCOMYCIN
     Indication: Sepsis
  2. CEFOTAXIME [Concomitant]
     Active Substance: CEFOTAXIME SODIUM
     Indication: Evidence based treatment
     Dosage: 3 X 150 MG/KG, (MAXIMUM DOSE 2000 MG)
  3. MEROPENEM [Concomitant]
     Active Substance: MEROPENEM
     Indication: Sepsis

REACTIONS (2)
  - Bacteraemia [Recovering/Resolving]
  - Acute kidney injury [Unknown]
